FAERS Safety Report 4921045-9 (Version None)
Quarter: 2006Q1

REPORT INFORMATION
  Report Type: 
  Country: None (occurrence: None)
  Receive Date: 20060223
  Receipt Date: 20050518
  Transmission Date: 20060701
  Serious: Yes (Hospitalization, Disabling)
  Sender: FDA-Public Use
  Company Number: US-MERCK-0505USA02286

PATIENT
  Age: 54 Year
  Sex: Male
  Weight: 91 kg

DRUGS (3)
  1. VIOXX [Suspect]
     Indication: ARTHRITIS
     Route: 048
     Dates: start: 20010201, end: 20040901
  2. VIOXX [Suspect]
     Indication: SPONDYLOLISTHESIS
     Route: 048
     Dates: start: 20010201, end: 20040901
  3. EXTRA STRENGTH TYLENOL [Concomitant]
     Route: 065

REACTIONS (9)
  - ANTIPHOSPHOLIPID ANTIBODIES POSITIVE [None]
  - ASTHENIA [None]
  - CENTRAL NERVOUS SYSTEM INFECTION [None]
  - CEREBELLAR INFARCTION [None]
  - HAEMORRHAGIC CEREBRAL INFARCTION [None]
  - HEADACHE [None]
  - HYDROCEPHALUS [None]
  - PULMONARY EMBOLISM [None]
  - VERTIGO [None]
